FAERS Safety Report 8579036-5 (Version None)
Quarter: 2012Q3

REPORT INFORMATION
  Report Type: 
  Country: None (occurrence: None)
  Receive Date: 20120808
  Receipt Date: 20120725
  Transmission Date: 20120928
  Serious: Yes (Other)
  Sender: FDA-Public Use
  Company Number: US-ROCHE-1061688

PATIENT
  Sex: Male
  Weight: 81.72 kg

DRUGS (4)
  1. ACCUTANE [Suspect]
     Route: 065
     Dates: start: 19980101, end: 19980701
  2. ACCUTANE [Suspect]
     Route: 065
     Dates: start: 19970601, end: 19970901
  3. CLARITIN [Concomitant]
  4. ACCUTANE [Suspect]
     Indication: ACNE
     Route: 065
     Dates: start: 19880301, end: 19881031

REACTIONS (6)
  - HEADACHE [None]
  - HYPERHIDROSIS [None]
  - INFLAMMATORY BOWEL DISEASE [None]
  - COLITIS ULCERATIVE [None]
  - EYELID OEDEMA [None]
  - DERMATITIS [None]
